FAERS Safety Report 6187510-4 (Version None)
Quarter: 2009Q2

REPORT INFORMATION
  Report Type: 
  Country: None (occurrence: None)
  Receive Date: 20090508
  Receipt Date: 20090424
  Transmission Date: 20091009
  Serious: Yes (Other)
  Sender: FDA-Public Use
  Company Number: 2009S1007381

PATIENT
  Sex: Female
  Weight: 40 kg

DRUGS (4)
  1. PRAVASTATIN [Suspect]
     Indication: HYPERCHOLESTEROLAEMIA
     Dosage: 20 MG; NULL_1_NULL; ORAL
     Route: 048
  2. HYDROCHLOROTHIAZIDE [Concomitant]
  3. ENAHEXAL /00574902/ [Concomitant]
  4. CYMBALTA [Concomitant]

REACTIONS (4)
  - ABDOMINAL DISTENSION [None]
  - CONSTIPATION [None]
  - MYALGIA [None]
  - SLEEP DISORDER [None]
